FAERS Safety Report 25590965 (Version 1)
Quarter: 2025Q3

REPORT INFORMATION
  Report Type: Report from Study
  Country: US (occurrence: US)
  Receive Date: 20250722
  Receipt Date: 20250722
  Transmission Date: 20251020
  Serious: No
  Sender: SUNOVION
  Company Number: US-SUMITOMO PHARMA SWITZERLAND GMBH-2025SPA008633

PATIENT

DRUGS (15)
  1. ORGOVYX [Suspect]
     Active Substance: RELUGOLIX
     Indication: Prostate cancer
     Route: 048
  2. ORGOVYX [Suspect]
     Active Substance: RELUGOLIX
     Route: 048
  3. XTANDI [Suspect]
     Active Substance: ENZALUTAMIDE
     Indication: Product used for unknown indication
     Route: 065
  4. ALLOPURINOL [Concomitant]
     Active Substance: ALLOPURINOL
     Route: 065
  5. AMLODIPINE BESYLATE [Concomitant]
     Active Substance: AMLODIPINE BESYLATE
     Route: 065
  6. HERBALS [Concomitant]
     Active Substance: HERBALS
     Route: 065
  7. ELIQUIS [Concomitant]
     Active Substance: APIXABAN
     Route: 065
  8. LEVOTHYROXINE SODIUM [Concomitant]
     Active Substance: LEVOTHYROXINE SODIUM
     Route: 065
  9. LISINOPRIL [Concomitant]
     Active Substance: LISINOPRIL
     Route: 065
  10. LOVASTATIN [Concomitant]
     Active Substance: LOVASTATIN
     Route: 065
  11. PROLIA [Concomitant]
     Active Substance: DENOSUMAB
     Route: 065
  12. SOTALOL [Concomitant]
     Active Substance: SOTALOL
     Route: 065
  13. TADALAFIL [Concomitant]
     Active Substance: TADALAFIL
     Route: 065
  14. VITAMIN B12 [Concomitant]
     Active Substance: CYANOCOBALAMIN
     Route: 065
  15. VITAMIN D3 [Concomitant]
     Active Substance: CHOLECALCIFEROL
     Route: 065

REACTIONS (4)
  - Abdominal distension [Unknown]
  - Muscle atrophy [Unknown]
  - Weight increased [Unknown]
  - Hot flush [Unknown]
